FAERS Safety Report 4320353-2 (Version None)
Quarter: 2004Q1

REPORT INFORMATION
  Report Type: 
  Country: None (occurrence: None)
  Receive Date: 20040317
  Receipt Date: 20040309
  Transmission Date: 20041129
  Serious: Yes (Hospitalization)
  Sender: FDA-Public Use
  Company Number: MAG-2004-0000242

PATIENT
  Age: 43 Year
  Sex: Male

DRUGS (2)
  1. POVIDONE IODINE [Suspect]
     Indication: CELLULITIS
     Dosage: TOPICAL
     Route: 061
  2. ACRINOL (ETHACRIDINE) [Concomitant]

REACTIONS (2)
  - DERMATITIS CONTACT [None]
  - SKIN TEST POSITIVE [None]
